FAERS Safety Report 7564947-X (Version None)
Quarter: 2011Q2

REPORT INFORMATION
  Report Type: 
  Country: None (occurrence: None)
  Receive Date: 20110622
  Receipt Date: 20110321
  Transmission Date: 20111010
  Serious: Yes (Death)
  Sender: FDA-Public Use
  Company Number: US-MYLANLABS-2011S1004192

PATIENT
  Age: 63 Year
  Sex: Male
  Weight: 103.42 kg

DRUGS (11)
  1. CLOZAPINE [Suspect]
     Dates: start: 19920101
  2. HYDROCHLOROTHIAZIDE [Concomitant]
  3. BACID [Concomitant]
     Dates: start: 20001119
  4. OXYGEN [Concomitant]
     Indication: SLEEP APNOEA SYNDROME
  5. DOXYCYCLINE [Concomitant]
     Dates: start: 20001119
  6. LORTADINE [Concomitant]
  7. SERTRALINE HYDROCHLORIDE [Concomitant]
  8. LISINOPRIL [Concomitant]
  9. CLOZAPINE [Suspect]
     Indication: SCHIZOPHRENIA
     Dates: start: 19920101
  10. CLINDAMYCIN [Concomitant]
     Dates: start: 20001119
  11. OMEPRAZOLE [Concomitant]

REACTIONS (1)
  - DEATH [None]
